FAERS Safety Report 23873274 (Version 1)
Quarter: 2024Q2

REPORT INFORMATION
  Report Type: Spontaneous
  Country: US (occurrence: US)
  Receive Date: 20240520
  Receipt Date: 20240520
  Transmission Date: 20240716
  Serious: No
  Sender: FDA-Public Use
  Company Number: US-CIPLA LTD.-2024US03160

PATIENT

DRUGS (2)
  1. ALBUTEROL [Suspect]
     Active Substance: ALBUTEROL
     Indication: Dyspnoea
     Dosage: 90 MICROGRAM, BID
  2. OLMESARTAN [Concomitant]
     Active Substance: OLMESARTAN
     Indication: Product used for unknown indication
     Dosage: 40-25 MG/ONCE IN A DAY, COUPLE OF YEARS AGO
     Route: 065

REACTIONS (3)
  - Dyspnoea [Recovering/Resolving]
  - Incorrect dose administered by device [Unknown]
  - Wrong technique in product usage process [Unknown]
